FAERS Safety Report 5099975-X (Version None)
Quarter: 2006Q3

REPORT INFORMATION
  Report Type: 
  Country: None (occurrence: None)
  Receive Date: 20060906
  Receipt Date: 20060831
  Transmission Date: 20061208
  Serious: Yes (Death)
  Sender: FDA-Public Use
  Company Number: S06-USA-03506-01

PATIENT
  Age: 45 Year
  Sex: Male

DRUGS (3)
  1. CELEXA [Suspect]
     Indication: DEPRESSION
     Dates: start: 20050301, end: 20050319
  2. SEROQUEL [Concomitant]
  3. KLONOPIN [Concomitant]

REACTIONS (3)
  - COMPLETED SUICIDE [None]
  - HOMICIDE [None]
  - SKIN LACERATION [None]
